FAERS Safety Report 17296355 (Version 1)
Quarter: 2020Q1

REPORT INFORMATION
  Report Type: Spontaneous
  Country: US (occurrence: US)
  Receive Date: 20200122
  Receipt Date: 20200122
  Transmission Date: 20200409
  Serious: No
  Sender: FDA-Public Use
  Company Number: US-009507513-2001USA000355

PATIENT
  Sex: Female

DRUGS (3)
  1. ZETIA [Suspect]
     Active Substance: EZETIMIBE
     Dosage: 10 MG ONCE A DAY
     Route: 048
     Dates: start: 201909, end: 20191229
  2. ZETIA [Suspect]
     Active Substance: EZETIMIBE
     Indication: LIPIDS ABNORMAL
     Dosage: 10 MG ONCE A DAY
     Route: 048
     Dates: start: 2011, end: 201907
  3. NIACIN. [Concomitant]
     Active Substance: NIACIN
     Dosage: UNK
     Dates: end: 201907

REACTIONS (6)
  - Hepatic enzyme increased [Recovered/Resolved]
  - Gait inability [Unknown]
  - Hepatic enzyme increased [Not Recovered/Not Resolved]
  - Weight decreased [Unknown]
  - Drug hypersensitivity [Unknown]
  - Pain in extremity [Recovered/Resolved]

NARRATIVE: CASE EVENT DATE: 2019
